FAERS Safety Report 5910834-X (Version None)
Quarter: 2008Q4

REPORT INFORMATION
  Report Type: 
  Country: None (occurrence: None)
  Receive Date: 20081006
  Receipt Date: 20081006
  Transmission Date: 20090506
  Serious: No
  Sender: FDA-Public Use
  Company Number: None

PATIENT
  Age: 62 Year
  Sex: Male
  Weight: 90.7194 kg

DRUGS (1)
  1. CLARITHROMYCIN [Suspect]
     Indication: INFLUENZA
     Dosage: 1 TABLET  TWICE DAILY PO
     Route: 048
     Dates: start: 20081001, end: 20081003

REACTIONS (2)
  - DYSURIA [None]
  - MICTURITION URGENCY [None]
